FAERS Safety Report 14976700 (Version 2)
Quarter: 2018Q3

REPORT INFORMATION
  Report Type: Spontaneous
  Country: US (occurrence: US)
  Receive Date: 20180605
  Receipt Date: 20180719
  Transmission Date: 20181010
  Serious: No
  Sender: FDA-Public Use
  Company Number: US-MATRIXX INITIATIVES, INC.-2049035

PATIENT
  Age: 53 Year
  Sex: Female
  Weight: 90.91 kg

DRUGS (12)
  1. CARAFATE [Concomitant]
     Active Substance: SUCRALFATE
  2. MULTIVITAMIN [Concomitant]
     Active Substance: VITAMINS
  3. DYMISTA [Concomitant]
     Active Substance: AZELASTINE HYDROCHLORIDE\FLUTICASONE PROPIONATE
  4. ZANTAC [Concomitant]
     Active Substance: RANITIDINE HYDROCHLORIDE
  5. PROAIR HFA [Concomitant]
     Active Substance: ALBUTEROL SULFATE
  6. ZICAM COLD REMEDY NASAL SWABS (HOMEOPATHICS) [Suspect]
     Active Substance: HOMEOPATHICS\ZINC ACETATE\ZINC GLUCONATE
     Indication: NASOPHARYNGITIS
     Route: 045
     Dates: start: 20160720, end: 20160730
  7. INSULIN PUMP [Concomitant]
     Active Substance: INSULIN NOS
  8. ALBUTEROL. [Concomitant]
     Active Substance: ALBUTEROL
  9. ADVAIR HFA [Concomitant]
     Active Substance: FLUTICASONE PROPIONATE\SALMETEROL XINAFOATE
  10. NORVASC [Concomitant]
     Active Substance: AMLODIPINE BESYLATE
  11. LISINOPRIL. [Concomitant]
     Active Substance: LISINOPRIL
  12. VITAMIN D [Concomitant]
     Active Substance: CHOLECALCIFEROL

REACTIONS (2)
  - Dysgeusia [Not Recovered/Not Resolved]
  - Anosmia [Not Recovered/Not Resolved]
